FAERS Safety Report 21857344 (Version 3)
Quarter: 2023Q1

REPORT INFORMATION
  Report Type: Spontaneous
  Country: US (occurrence: US)
  Receive Date: 20230113
  Receipt Date: 20230209
  Transmission Date: 20230417
  Serious: Yes (Hospitalization, Other)
  Sender: FDA-Public Use
  Company Number: US-009507513-2301USA002083

PATIENT
  Sex: Male
  Weight: 96.145 kg

DRUGS (9)
  1. TICE BCG [Suspect]
     Active Substance: BACILLUS CALMETTE-GUERIN SUBSTRAIN TICE LIVE ANTIGEN
     Indication: Bladder cancer
     Dosage: ROUTE OF ADMINISTRATION: INFUSION, RECEIVED# 1/6
     Route: 043
     Dates: start: 20190729
  2. TICE BCG [Suspect]
     Active Substance: BACILLUS CALMETTE-GUERIN SUBSTRAIN TICE LIVE ANTIGEN
     Dosage: RECEIVED # 2/6
     Route: 043
     Dates: start: 20190805
  3. TICE BCG [Suspect]
     Active Substance: BACILLUS CALMETTE-GUERIN SUBSTRAIN TICE LIVE ANTIGEN
     Dosage: RECEIVED # 3/6
     Route: 043
     Dates: start: 20190812
  4. TICE BCG [Suspect]
     Active Substance: BACILLUS CALMETTE-GUERIN SUBSTRAIN TICE LIVE ANTIGEN
     Dosage: RECEIVED # 4/6
     Route: 043
     Dates: start: 20190822
  5. TICE BCG [Suspect]
     Active Substance: BACILLUS CALMETTE-GUERIN SUBSTRAIN TICE LIVE ANTIGEN
     Dosage: RECEIVED # 5/6
     Route: 043
     Dates: start: 20190829
  6. TICE BCG [Suspect]
     Active Substance: BACILLUS CALMETTE-GUERIN SUBSTRAIN TICE LIVE ANTIGEN
     Dosage: RECEIVED # 6/6
     Route: 043
     Dates: start: 20190905
  7. TICE BCG [Suspect]
     Active Substance: BACILLUS CALMETTE-GUERIN SUBSTRAIN TICE LIVE ANTIGEN
     Dosage: RECEIVED #1/3
     Route: 043
     Dates: start: 20191216
  8. TICE BCG [Suspect]
     Active Substance: BACILLUS CALMETTE-GUERIN SUBSTRAIN TICE LIVE ANTIGEN
     Dosage: RECEIVED # 2/3
     Route: 043
     Dates: start: 20191223
  9. TICE BCG [Suspect]
     Active Substance: BACILLUS CALMETTE-GUERIN SUBSTRAIN TICE LIVE ANTIGEN
     Dosage: RECEIVED # 3/3
     Route: 043
     Dates: start: 20191230

REACTIONS (21)
  - Hip arthroplasty [Unknown]
  - Seizure [Unknown]
  - Erectile dysfunction [Unknown]
  - Bladder cancer recurrent [Unknown]
  - Tuberculosis [Not Recovered/Not Resolved]
  - Wound [Unknown]
  - Wound secretion [Unknown]
  - Ill-defined disorder [Unknown]
  - Bladder catheterisation [Unknown]
  - Benign prostatic hyperplasia [Unknown]
  - Lower urinary tract symptoms [Unknown]
  - Blood pressure abnormal [Unknown]
  - Antibiotic prophylaxis [Unknown]
  - Cyst [Unknown]
  - Asthenia [Unknown]
  - Gait disturbance [Unknown]
  - Body mass index increased [Unknown]
  - Urine analysis abnormal [Unknown]
  - Urine analysis abnormal [Unknown]
  - Nausea [Unknown]
  - Product use issue [Unknown]

NARRATIVE: CASE EVENT DATE: 20190822
